FAERS Safety Report 5132860-3 (Version None)
Quarter: 2006Q4

REPORT INFORMATION
  Report Type: 
  Country: None (occurrence: None)
  Receive Date: 20061019
  Receipt Date: 20061019
  Transmission Date: 20070319
  Serious: Yes (Hospitalization)
  Sender: FDA-Public Use
  Company Number: None

PATIENT
  Sex: Female
  Weight: 8.06 kg

DRUGS (2)
  1. PANGLOBULIN [Suspect]
     Indication: KAWASAKI'S DISEASE
     Dosage: 16.5 GM X 1
     Dates: start: 20060929
  2. PANGLOBULIN [Suspect]
     Dosage: IV
     Route: 042

REACTIONS (8)
  - BLOOD PRESSURE IMMEASURABLE [None]
  - BODY TEMPERATURE INCREASED [None]
  - CAPILLARY NAIL REFILL TEST [None]
  - CRYING [None]
  - CYANOSIS [None]
  - INFUSION RELATED REACTION [None]
  - TREMOR [None]
  - VASCULAR TEST ABNORMAL [None]
